FAERS Safety Report 11885299 (Version 1)
Quarter: 2015Q4

REPORT INFORMATION
  Report Type: Spontaneous
  Country: US (occurrence: None)
  Receive Date: 20151231
  Receipt Date: 20151231
  Transmission Date: 20160305
  Serious: Yes (Hospitalization, Disabling)
  Sender: FDA-Public Use
  Company Number: None

PATIENT
  Age: 53 Year
  Sex: Female
  Weight: 68.04 kg

DRUGS (13)
  1. METHOCARBAM [Concomitant]
  2. ALPRAZOLAM. [Concomitant]
     Active Substance: ALPRAZOLAM
  3. GABAPENTIN. [Concomitant]
     Active Substance: GABAPENTIN
  4. CLONADINE [Concomitant]
  5. SPIRIVA [Concomitant]
     Active Substance: TIOTROPIUM BROMIDE MONOHYDRATE
  6. LEXISCAN [Suspect]
     Active Substance: REGADENOSON
     Indication: CARDIAC STRESS TEST
     Dosage: PER TEST PER TEST INTO A VEIN
     Route: 042
     Dates: start: 20141009, end: 20141009
  7. FLECANIDE [Concomitant]
     Active Substance: FLECAINIDE
  8. LOSARTIN [Concomitant]
     Active Substance: LOSARTAN
  9. FISH OIL [Concomitant]
     Active Substance: FISH OIL
  10. AMLOOPINE [Concomitant]
  11. QVAR [Concomitant]
     Active Substance: BECLOMETHASONE DIPROPIONATE
  12. VITAMIN D [Concomitant]
     Active Substance: CHOLECALCIFEROL
  13. ASPIRIN. [Concomitant]
     Active Substance: ASPIRIN

REACTIONS (6)
  - Capillary fragility [None]
  - Burning sensation [None]
  - Bronchitis chemical [None]
  - Aneurysm [None]
  - Skin discolouration [None]
  - Fibromyalgia [None]

NARRATIVE: CASE EVENT DATE: 20141009
